FAERS Safety Report 8599547-6 (Version None)
Quarter: 2012Q3

REPORT INFORMATION
  Report Type: 
  Country: None (occurrence: None)
  Receive Date: 20120816
  Receipt Date: 20120808
  Transmission Date: 20120928
  Serious: Yes (Other)
  Sender: FDA-Public Use
  Company Number: PHHY2012JP041989

PATIENT
  Age: 82 Year
  Sex: Male

DRUGS (3)
  1. SANDIMMUNE [Suspect]
     Indication: IMMUNOSUPPRESSANT DRUG THERAPY
     Dosage: 20 TO 100MG,DAILY
     Route: 041
     Dates: start: 20111111, end: 20111216
  2. FACTOR VIII, RECOMBINANT [Concomitant]
  3. SANDIMMUNE [Suspect]
     Indication: ACQUIRED HAEMOPHILIA

REACTIONS (5)
  - GENERAL PHYSICAL HEALTH DETERIORATION [None]
  - ASPERGILLOSIS [None]
  - CYTOMEGALOVIRUS INFECTION [None]
  - CHOLECYSTITIS [None]
  - PNEUMONIA [None]
